FAERS Safety Report 6229879-8 (Version None)
Quarter: 2009Q2

REPORT INFORMATION
  Report Type: 
  Country: None (occurrence: None)
  Receive Date: 20090615
  Receipt Date: 20090602
  Transmission Date: 20091009
  Serious: Yes (Hospitalization, Other)
  Sender: FDA-Public Use
  Company Number: FR-ELI_LILLY_AND_COMPANY-FR200903007645

PATIENT
  Age: 72 Year
  Sex: Male
  Weight: 80 kg

DRUGS (5)
  1. CYMBALTA [Suspect]
     Dosage: 30 MG, DAILY (1/D)
     Route: 048
     Dates: start: 20090305, end: 20090309
  2. BROMAZEPAM [Concomitant]
     Dosage: 6 MG, DAILY (1/D)
     Route: 065
  3. ZOPICLONE [Concomitant]
     Dosage: 7.5 MG, DAILY (1/D)
     Route: 065
  4. TAHOR [Concomitant]
     Dosage: 1 D/F, DAILY (1/D)
     Route: 065
  5. IRBESARTAN [Concomitant]
     Dosage: 0.5 D/F, DAILY (1/D)
     Route: 065

REACTIONS (4)
  - ANURIA [None]
  - DYSURIA [None]
  - INTESTINAL OBSTRUCTION [None]
  - RENAL FAILURE [None]
